FAERS Safety Report 5262062-1 (Version None)
Quarter: 2007Q1

REPORT INFORMATION
  Report Type: 
  Country: None (occurrence: None)
  Receive Date: 20061208
  Receipt Date: 20061005
  Transmission Date: 20070707
  Serious: Yes (Death, Other)
  Sender: FDA-Public Use
  Company Number: USA-2006-0025350

PATIENT
  Age: 16 Year
  Sex: Male

DRUGS (4)
  1. OXYCODONE HCL [Suspect]
     Indication: DRUG ABUSER
  2. MORPHINE SULFATE [Suspect]
     Indication: DRUG ABUSER
  3. OPIOIDS (OPIOIDS) [Suspect]
     Indication: DRUG ABUSER
  4. CANNABIS (CANNABIS) [Suspect]
     Indication: DRUG ABUSER

REACTIONS (2)
  - MULTIPLE DRUG OVERDOSE ACCIDENTAL [None]
  - SUBSTANCE ABUSE [None]
